FAERS Safety Report 9119367 (Version 1)
Quarter: 2013Q1

REPORT INFORMATION
  Report Type: Spontaneous
  Country: US (occurrence: None)
  Receive Date: 20130221
  Receipt Date: 20130221
  Transmission Date: 20140127
  Serious: Yes (Hospitalization)
  Sender: FDA-Public Use
  Company Number: None

PATIENT
  Age: 44 Year
  Sex: Female
  Weight: 104 kg

DRUGS (9)
  1. VANCOMYCIN HYDROCHLORIDE [Suspect]
     Indication: PNEUMONIA
     Route: 042
     Dates: start: 20130207, end: 20130209
  2. VANCOMYCIN HYDROCHLORIDE [Suspect]
     Indication: PNEUMONIA
     Route: 042
     Dates: start: 20130209
  3. VALOROIC ACID [Concomitant]
  4. PIPERACILLIN/TAZOBACTAM [Concomitant]
  5. MIRALAX [Concomitant]
  6. KEPPRA [Concomitant]
  7. LORAZEPAM [Concomitant]
  8. DIAZEPAM [Concomitant]
  9. ACETAMINOPHEN [Concomitant]

REACTIONS (2)
  - Renal failure acute [None]
  - Haemodialysis [None]
